FAERS Safety Report 17675116 (Version 1)
Quarter: 2020Q2

REPORT INFORMATION
  Report Type: Spontaneous
  Country: US (occurrence: US)
  Receive Date: 20200415
  Receipt Date: 20200415
  Transmission Date: 20200714
  Serious: No
  Sender: FDA-Public Use
  Company Number: None

PATIENT
  Age: 65 Year
  Sex: Female
  Weight: 61.65 kg

DRUGS (20)
  1. CYCLOBENZAPRINE 10MG ,ORAL [Concomitant]
  2. RETACRIT 40000U, IJ [Concomitant]
  3. METOPROLOL TARTRATE 25MG, ORAL [Concomitant]
  4. AMLODIPINE 10MG, ORAL [Concomitant]
  5. GABAPENTIN 100MG, ORAL [Concomitant]
  6. ELIQUIS 2.5MG, ORAL [Concomitant]
  7. LEVOTHYROXINE 112 MCG, ORAL [Concomitant]
  8. MIRTAZAPINE 15MG, ORAL [Concomitant]
  9. STOOL SOFTENER 100MG ,ORAL [Concomitant]
  10. TYLENOL 8 HOUR ARTHRITIS PAIN 650MG, ORAL [Concomitant]
  11. ALLOPURINOL 100MG ,ORAL [Concomitant]
  12. PREDNISOLONE 10MG ,ORAL [Concomitant]
  13. VITAMIN D2 50000U [Concomitant]
  14. PROCRIT [Suspect]
     Active Substance: ERYTHROPOIETIN
     Indication: HAEMOCHROMATOSIS
     Dosage: ?          OTHER FREQUENCY:EVERY WEEK;?
     Route: 058
     Dates: start: 20191023, end: 20200415
  15. LAMOTRIGINE 25MG, , ORAL [Concomitant]
  16. CALCITRIOL 0.25MG, ORAL [Concomitant]
  17. MONTELUKAST 10MG ,ORAL [Concomitant]
  18. NYSTOP [Concomitant]
     Active Substance: NYSTATIN
  19. SIMVASTATIN 40MG, ORAL [Concomitant]
  20. SODIUM BICARBONATE 650MG,ORAL [Concomitant]

REACTIONS (2)
  - Therapy interrupted [None]
  - Hospitalisation [None]

NARRATIVE: CASE EVENT DATE: 20200415
